FAERS Safety Report 6768203-9 (Version None)
Quarter: 2010Q2

REPORT INFORMATION
  Report Type: 
  Country: None (occurrence: None)
  Receive Date: 20100614
  Receipt Date: 20100601
  Transmission Date: 20101027
  Serious: Yes (Hospitalization)
  Sender: FDA-Public Use
  Company Number: US-MERCK-1006USA00375

PATIENT
  Age: 88 Year
  Sex: Female

DRUGS (5)
  1. HYZAAR [Suspect]
     Indication: HYPERTENSION
     Route: 048
  2. LIPITOR [Concomitant]
     Route: 065
  3. PLAVIX [Concomitant]
     Route: 065
  4. TOPROL-XL [Concomitant]
     Route: 065
  5. LUMIGAN [Concomitant]
     Route: 065

REACTIONS (5)
  - CARDIAC FIBRILLATION [None]
  - MALAISE [None]
  - OEDEMA MOUTH [None]
  - PRURITUS [None]
  - SWOLLEN TONGUE [None]
